FAERS Safety Report 5782714-4 (Version None)
Quarter: 2008Q2

REPORT INFORMATION
  Report Type: 
  Country: None (occurrence: None)
  Receive Date: 20080619
  Receipt Date: 20080619
  Transmission Date: 20081010
  Serious: Yes (Disabling, Other)
  Sender: FDA-Public Use
  Company Number: None

PATIENT
  Sex: Female
  Weight: 62.5964 kg

DRUGS (2)
  1. CRESTOR [Suspect]
     Indication: BLOOD CHOLESTEROL INCREASED
     Dates: start: 20040320, end: 20040720
  2. CRESTOR [Suspect]
     Indication: DRUG LEVEL INCREASED
     Dates: start: 20040320, end: 20040720

REACTIONS (2)
  - RENAL ARTERY OCCLUSION [None]
  - RENAL DISORDER [None]
